FAERS Safety Report 7224898-7 (Version None)
Quarter: 2011Q1

REPORT INFORMATION
  Report Type: 
  Country: None (occurrence: None)
  Receive Date: 20110113
  Receipt Date: 20110105
  Transmission Date: 20110831
  Serious: Yes (Hospitalization, Other)
  Sender: FDA-Public Use
  Company Number: US-ROCHE-751506

PATIENT
  Sex: Female
  Weight: 72.6 kg

DRUGS (3)
  1. RIBAVARIN [Suspect]
     Indication: HEPATITIS C
     Dosage: DIVIDED DOSES, WEEK 10 OF TREATMENT
     Route: 065
     Dates: start: 20101016
  2. LISINOPRIL [Concomitant]
  3. PEGINTERFERON ALFA-2A [Suspect]
     Indication: HEPATITIS C
     Dosage: FORM: PRE-FILLED SYRINGE, WEEK 10 OF TREATMENT
     Route: 058
     Dates: start: 20101016

REACTIONS (9)
  - RENAL INJURY [None]
  - ESCHERICHIA INFECTION [None]
  - BIPOLAR DISORDER [None]
  - URINARY TRACT INFECTION [None]
  - PNEUMONIA [None]
  - MENTAL DISORDER [None]
  - ANAEMIA [None]
  - BACTERAEMIA [None]
  - CONTUSION [None]
